FAERS Safety Report 10642656 (Version 1)
Quarter: 2014Q4

REPORT INFORMATION
  Report Type: Spontaneous
  Country: US (occurrence: None)
  Receive Date: 20141121
  Receipt Date: 20141121
  Transmission Date: 20150529
  Serious: No
  Sender: FDA-Public Use
  Company Number: 163-10004-14071955

PATIENT
  Age: 52 Year
  Sex: Female

DRUGS (5)
  1. STRATTERA (ATOMOXETINE HYDROCHLORIDE) [Concomitant]
  2. VITAMIN D (ERGOCALCIFEROL) [Concomitant]
     Active Substance: ERGOCALCIFEROL
  3. CALCIUM + VITAMIN D (LEKOVIT CA) [Concomitant]
     Active Substance: CALCIUM\VITAMIN D
  4. OTEZLA [Suspect]
     Active Substance: APREMILAST
     Indication: PSORIATIC ARTHROPATHY
     Route: 048
     Dates: start: 20140603
  5. LOSARTAN POTASSIUM. [Concomitant]
     Active Substance: LOSARTAN POTASSIUM

REACTIONS (1)
  - Alopecia [None]

NARRATIVE: CASE EVENT DATE: 2014
